FAERS Safety Report 9947158 (Version 1)
Quarter: 2014Q1

REPORT INFORMATION
  Report Type: Report from Study
  Country: US (occurrence: US)
  Receive Date: 20140303
  Receipt Date: 20140303
  Transmission Date: 20141002
  Serious: No
  Sender: FDA-Public Use
  Company Number: US-ABBVIE-13P-163-1062290-00

PATIENT
  Age: 59 Year
  Sex: Female

DRUGS (14)
  1. HUMIRA [Suspect]
     Indication: PSORIATIC ARTHROPATHY
     Dates: start: 201204, end: 201301
  2. HUMIRA [Suspect]
     Dates: start: 201301, end: 201303
  3. HUMIRA [Suspect]
     Dates: start: 201303
  4. METHOTREXATE [Concomitant]
     Indication: PRODUCT USED FOR UNKNOWN INDICATION
  5. LASIX [Concomitant]
     Indication: BLOOD PRESSURE
  6. PROCARDIA [Concomitant]
     Indication: HYPERTENSION
  7. OMEPRAZOLE [Concomitant]
     Indication: GASTRIC DISORDER
  8. PROTONIX [Concomitant]
     Indication: PRODUCT USED FOR UNKNOWN INDICATION
  9. COUMADIN [Concomitant]
     Indication: THROMBOSIS
     Dosage: 3MG 1 DAY AND 4MG THE NEXT DAY
  10. FOLIC ACID [Concomitant]
     Indication: PRODUCT USED FOR UNKNOWN INDICATION
  11. SINGULAIR [Concomitant]
     Indication: ASTHMA
  12. SYMBICORT [Concomitant]
     Indication: ASTHMA
  13. POTASSIUM [Concomitant]
     Indication: MINERAL SUPPLEMENTATION
  14. VITAMIN D [Concomitant]
     Indication: PRODUCT USED FOR UNKNOWN INDICATION

REACTIONS (10)
  - Thyroid neoplasm [Unknown]
  - Familial risk factor [Unknown]
  - Herpes zoster [Unknown]
  - Scar [Unknown]
  - Sinusitis [Unknown]
  - Fall [Unknown]
  - Contusion [Unknown]
  - Head injury [Unknown]
  - Periorbital contusion [Unknown]
  - Influenza [Recovered/Resolved]
